FAERS Safety Report 7210360-4 (Version None)
Quarter: 2010Q4

REPORT INFORMATION
  Report Type: 
  Country: None (occurrence: None)
  Receive Date: 20101221
  Receipt Date: 20101209
  Transmission Date: 20110411
  Serious: Yes (Hospitalization, Other)
  Sender: FDA-Public Use
  Company Number: 2010027100

PATIENT
  Sex: Female

DRUGS (1)
  1. PRIVIGEN [Suspect]
     Indication: IMMUNODEFICIENCY
     Dosage: (10 G 1X/MONTH INTRAVENOUS)
     Route: 042
     Dates: start: 20101005

REACTIONS (6)
  - BLOOD CULTURE POSITIVE [None]
  - CHILLS [None]
  - ENTEROBACTER INFECTION [None]
  - ESCHERICHIA INFECTION [None]
  - HYPOTENSION [None]
  - INFUSION RELATED REACTION [None]
